FAERS Safety Report 7377313-7 (Version None)
Quarter: 2011Q1

REPORT INFORMATION
  Report Type: 
  Country: None (occurrence: None)
  Receive Date: 20110316
  Receipt Date: 20110224
  Transmission Date: 20110831
  Serious: Yes (Hospitalization, Other)
  Sender: FDA-Public Use
  Company Number: 2011SP005635

PATIENT
  Age: 70 Year
  Sex: Female

DRUGS (6)
  1. KEPPRA [Concomitant]
  2. DEXAMETHASONE [Concomitant]
  3. TEMODAL [Suspect]
     Indication: BRAIN NEOPLASM
     Dosage: (270 MG) (270 MG)
     Dates: start: 20101126, end: 20101224
  4. TEMODAL [Suspect]
     Indication: BRAIN NEOPLASM
     Dosage: (270 MG) (270 MG)
     Dates: start: 20101028
  5. XANAX [Concomitant]
  6. NATRILIX [Concomitant]

REACTIONS (3)
  - HEPATOTOXICITY [None]
  - HEPATIC FUNCTION ABNORMAL [None]
  - LOSS OF CONSCIOUSNESS [None]
